FAERS Safety Report 19380570 (Version 1)
Quarter: 2021Q2

REPORT INFORMATION
  Report Type: Spontaneous
  Country: US (occurrence: US)
  Receive Date: 20210604
  Receipt Date: 20210604
  Transmission Date: 20210717
  Serious: No
  Sender: FDA-Public Use
  Company Number: None

PATIENT
  Age: 41 Year
  Sex: Female

DRUGS (2)
  1. PARAGARD T 380A [Concomitant]
     Active Substance: COPPER
     Dates: start: 20101022, end: 20210603
  2. PARAGARD T 380A [Suspect]
     Active Substance: COPPER
     Dates: start: 20101022, end: 20210603

REACTIONS (2)
  - Device breakage [None]
  - Embedded device [None]

NARRATIVE: CASE EVENT DATE: 20210603
